FAERS Safety Report 8555669-7 (Version None)
Quarter: 2012Q3

REPORT INFORMATION
  Report Type: 
  Country: None (occurrence: None)
  Receive Date: 20120801
  Receipt Date: 20120727
  Transmission Date: 20120928
  Serious: Yes (Death, Hospitalization, Other)
  Sender: FDA-Public Use
  Company Number: AU-AMGEN-AUSSP2012046963

PATIENT
  Age: 64 Year
  Sex: Male

DRUGS (3)
  1. CISPLATIN [Concomitant]
     Indication: TESTICULAR CANCER METASTATIC
  2. NEULASTA [Suspect]
     Indication: CHEMOTHERAPY
  3. ETOPOSIDE [Concomitant]
     Indication: TESTICULAR CANCER METASTATIC

REACTIONS (3)
  - FEBRILE NEUTROPENIA [None]
  - NEUTROPENIC SEPSIS [None]
  - NECROTISING COLITIS [None]
